FAERS Safety Report 4813125-3 (Version None)
Quarter: 2005Q4

REPORT INFORMATION
  Report Type: 
  Country: None (occurrence: None)
  Receive Date: 20051028
  Receipt Date: 20051018
  Transmission Date: 20060501
  Serious: Yes (Hospitalization)
  Sender: FDA-Public Use
  Company Number: 2005UW15690

PATIENT
  Sex: Male

DRUGS (3)
  1. SEROQUEL [Suspect]
     Route: 048
  2. INDERAL [Suspect]
  3. CLONOPIN [Suspect]

REACTIONS (2)
  - SMALL INTESTINAL OBSTRUCTION [None]
  - URINARY RETENTION [None]
